FAERS Safety Report 4680413-3 (Version None)
Quarter: 2005Q2

REPORT INFORMATION
  Report Type: 
  Country: None (occurrence: None)
  Receive Date: 20050601
  Receipt Date: 20050517
  Transmission Date: 20051028
  Serious: Yes (Hospitalization)
  Sender: FDA-Public Use
  Company Number: FR_050506443

PATIENT
  Sex: Female

DRUGS (2)
  1. FORTEO [Suspect]
     Indication: OSTEOPOROSIS
     Dosage: 20 UG DAY
     Dates: start: 20050117, end: 20050513
  2. DIAMICRON (GLICLAZIDE) [Concomitant]

REACTIONS (2)
  - EXTRASYSTOLES [None]
  - PULMONARY EMBOLISM [None]
